FAERS Safety Report 25972266 (Version 1)
Quarter: 2025Q4

REPORT INFORMATION
  Report Type: Spontaneous
  Country: CA (occurrence: CA)
  Receive Date: 20251029
  Receipt Date: 20251029
  Transmission Date: 20260118
  Serious: Yes (Other)
  Sender: AUROBINDO
  Company Number: CA-AUROBINDO-AUR-APL-2025-054691

PATIENT
  Age: 62 Year
  Sex: Male

DRUGS (3)
  1. SERTRALINE [Suspect]
     Active Substance: SERTRALINE HYDROCHLORIDE
     Indication: Product used for unknown indication
     Dosage: 1 DOSAGE FORM, ONCE A DAY
     Route: 065
  2. ATIVAN [Concomitant]
     Active Substance: LORAZEPAM
     Indication: Product used for unknown indication
     Dosage: UNK
     Route: 065
  3. SEROQUEL XR [Concomitant]
     Active Substance: QUETIAPINE FUMARATE
     Indication: Product used for unknown indication
     Dosage: UNK
     Route: 065

REACTIONS (13)
  - Amnesia [Unknown]
  - Aphonia [Unknown]
  - Depression [Unknown]
  - Dizziness [Unknown]
  - Ear haemorrhage [Unknown]
  - Ear pain [Unknown]
  - Hyperhidrosis [Unknown]
  - Hypoaesthesia oral [Unknown]
  - Nausea [Unknown]
  - Oropharyngeal pain [Unknown]
  - Productive cough [Unknown]
  - Pruritus [Unknown]
  - Rash [Unknown]
